FAERS Safety Report 17063624 (Version 1)
Quarter: 2019Q4

REPORT INFORMATION
  Report Type: Spontaneous
  Country: US (occurrence: US)
  Receive Date: 20191122
  Receipt Date: 20191122
  Transmission Date: 20200122
  Serious: Yes (Death, Other)
  Sender: FDA-Public Use
  Company Number: US-ELI_LILLY_AND_COMPANY-US201911008965

PATIENT
  Age: 75 Year
  Sex: Female

DRUGS (4)
  1. DOCETAXEL. [Suspect]
     Active Substance: DOCETAXEL
     Indication: MALIGNANT NEOPLASM PROGRESSION
     Dosage: 60 MG, CYCLICAL
     Route: 042
  2. CYRAMZA [Suspect]
     Active Substance: RAMUCIRUMAB
     Indication: SQUAMOUS CELL CARCINOMA OF LUNG
     Dosage: STANDARD DOSE, CYCLICAL
     Route: 042
  3. CYRAMZA [Suspect]
     Active Substance: RAMUCIRUMAB
     Indication: MALIGNANT NEOPLASM PROGRESSION
  4. DOCETAXEL. [Suspect]
     Active Substance: DOCETAXEL
     Indication: SQUAMOUS CELL CARCINOMA OF LUNG
     Dosage: 75 MG, CYCLICAL
     Route: 042

REACTIONS (3)
  - Malignant neoplasm progression [Fatal]
  - Epistaxis [Not Recovered/Not Resolved]
  - Haemoptysis [Fatal]
